FAERS Safety Report 6738050-2 (Version None)
Quarter: 2010Q2

REPORT INFORMATION
  Report Type: 
  Country: None (occurrence: None)
  Receive Date: 20100524
  Receipt Date: 20100513
  Transmission Date: 20101027
  Serious: Yes (Hospitalization)
  Sender: FDA-Public Use
  Company Number: FR-PERRIGO-10FR009639

PATIENT
  Age: 48 Year
  Sex: Female

DRUGS (3)
  1. IBUPROFEN 200 MG 604 [Suspect]
     Indication: TENDONITIS
     Dosage: UNK
     Route: 048
  2. ALPRAZOLAM [Concomitant]
     Indication: DEPRESSION
     Route: 065
  3. FLUOXETINE [Concomitant]
     Indication: DEPRESSION
     Route: 065

REACTIONS (13)
  - BLINDNESS [None]
  - DERMATITIS EXFOLIATIVE [None]
  - DRUG RASH WITH EOSINOPHILIA AND SYSTEMIC SYMPTOMS [None]
  - EOSINOPHILIA [None]
  - FACE OEDEMA [None]
  - HEPATITIS [None]
  - MYOCARDITIS [None]
  - NEPHRITIS [None]
  - ORAL MUCOSA EROSION [None]
  - PANCREATITIS [None]
  - PYREXIA [None]
  - RENAL FAILURE [None]
  - UVEITIS [None]
